FAERS Safety Report 13881925 (Version 1)
Quarter: 2017Q3

REPORT INFORMATION
  Report Type: Spontaneous
  Country: IL (occurrence: IL)
  Receive Date: 20170818
  Receipt Date: 20170818
  Transmission Date: 20171127
  Serious: Yes (Hospitalization)
  Sender: FDA-Public Use
  Company Number: IL-AMGEN-ISRSP2017123898

PATIENT
  Age: 82 Year
  Sex: Male

DRUGS (7)
  1. ARANESP [Suspect]
     Active Substance: DARBEPOETIN ALFA
     Indication: NEPHROGENIC ANAEMIA
     Dosage: UNK
     Route: 065
  2. VPRIV [Concomitant]
     Active Substance: VELAGLUCERASE ALFA
     Indication: GAUCHER^S DISEASE
     Dosage: 15 IU/KG, Q2WK
     Dates: start: 20161129
  3. LIPITOR [Concomitant]
     Active Substance: ATORVASTATIN CALCIUM
  4. APIDRA [Concomitant]
     Active Substance: INSULIN GLULISINE
  5. FUSID [Concomitant]
     Active Substance: FUROSEMIDE
  6. ELIQUIS [Concomitant]
     Active Substance: APIXABAN
  7. CADEX [Concomitant]

REACTIONS (1)
  - Infection [Not Recovered/Not Resolved]

NARRATIVE: CASE EVENT DATE: 20170611
